FAERS Safety Report 19500120 (Version 2)
Quarter: 2021Q3

REPORT INFORMATION
  Report Type: Other
  Country: RU (occurrence: RU)
  Receive Date: 20210706
  Receipt Date: 20210715
  Transmission Date: 20211014
  Serious: Yes (Other)
  Sender: FDA-Public Use
  Company Number: RU-US-PROVELL PHARMACEUTICALS LLC-9248502

PATIENT
  Age: 72 Year
  Sex: Female

DRUGS (1)
  1. L?THYROXINE [Suspect]
     Active Substance: LEVOTHYROXINE
     Indication: POST PROCEDURAL HYPOTHYROIDISM
     Dates: start: 1988

REACTIONS (1)
  - Idiopathic pulmonary fibrosis [Unknown]

NARRATIVE: CASE EVENT DATE: 1989
